FAERS Safety Report 21860946 (Version 1)
Quarter: 2023Q1

REPORT INFORMATION
  Report Type: Other
  Country: CA (occurrence: CA)
  Receive Date: 20230113
  Receipt Date: 20230113
  Transmission Date: 20230417
  Serious: Yes (Death, Other)
  Sender: FDA-Public Use
  Company Number: CA-APOTEX-2022AP016761

PATIENT
  Sex: Male

DRUGS (1)
  1. LENALIDOMIDE [Suspect]
     Active Substance: LENALIDOMIDE
     Indication: Plasma cell myeloma
     Dosage: 5 MILLIGRAM, QD (FOR 21/28 DAYS)
     Route: 048
     Dates: start: 20220811, end: 2022

REACTIONS (2)
  - Death [Fatal]
  - Product use complaint [Unknown]

NARRATIVE: CASE EVENT DATE: 20220101
